FAERS Safety Report 13340462 (Version 7)
Quarter: 2021Q1

REPORT INFORMATION
  Report Type: Spontaneous
  Country: US (occurrence: US)
  Receive Date: 20170316
  Receipt Date: 20210114
  Transmission Date: 20210419
  Serious: No
  Sender: FDA-Public Use
  Company Number: US-PFIZER INC-2017113247

PATIENT
  Age: 66 Year
  Sex: Female
  Weight: 79 kg

DRUGS (5)
  1. PRISTIQ EXTENDED?RELEASE [Suspect]
     Active Substance: DESVENLAFAXINE SUCCINATE
     Dosage: 50 MG, 2X/DAY
     Dates: start: 2017
  2. PRISTIQ EXTENDED?RELEASE [Suspect]
     Active Substance: DESVENLAFAXINE SUCCINATE
     Indication: MAJOR DEPRESSION
     Dosage: 50 MG, 1X/DAY
     Dates: start: 2016
  3. OMEPRAZOLE. [Concomitant]
     Active Substance: OMEPRAZOLE
     Indication: HYPERCHLORHYDRIA
     Dosage: 40 MG, 1X/DAY
     Route: 048
  4. AMPHETAMINE [Concomitant]
     Active Substance: AMPHETAMINE
     Indication: ATTENTION DEFICIT HYPERACTIVITY DISORDER
     Dosage: 60 MG, 2X/DAY
     Route: 048
  5. PRISTIQ EXTENDED?RELEASE [Suspect]
     Active Substance: DESVENLAFAXINE SUCCINATE
     Dosage: 100 MG, DAILY (TWO 50 TABLETS PER DAY)

REACTIONS (5)
  - Product prescribing error [Unknown]
  - Emotional disorder [Unknown]
  - Crying [Unknown]
  - Intentional product use issue [Unknown]
  - Feeling abnormal [Unknown]
